FAERS Safety Report 5685910-X (Version None)
Quarter: 2008Q1

REPORT INFORMATION
  Report Type: 
  Country: None (occurrence: None)
  Receive Date: 20080328
  Receipt Date: 20070919
  Transmission Date: 20080703
  Serious: No
  Sender: FDA-Public Use
  Company Number: US-BAYER-US-2007-035510

PATIENT
  Age: 37 Year
  Sex: Female
  Weight: 109 kg

DRUGS (4)
  1. MIRENA [Suspect]
     Indication: CONTRACEPTION
     Route: 015
     Dates: start: 20060601
  2. XENICAL [Concomitant]
     Dates: start: 20060401, end: 20070101
  3. MERIDIA [Concomitant]
     Dates: start: 20070701, end: 20070101
  4. PREVACID [Concomitant]
     Dosage: UNIT DOSE: 30 MG

REACTIONS (1)
  - WEIGHT INCREASED [None]
